FAERS Safety Report 8017513-6 (Version None)
Quarter: 2011Q4

REPORT INFORMATION
  Report Type: 
  Country: None (occurrence: None)
  Receive Date: 20111228
  Receipt Date: 20111228
  Transmission Date: 20120403
  Serious: No
  Sender: FDA-Public Use
  Company Number: None

PATIENT

DRUGS (1)
  1. AVELOX [Suspect]
     Indication: CHEST DISCOMFORT
     Dosage: 7 PILLS
     Dates: start: 20111205, end: 20111211

REACTIONS (4)
  - HEADACHE [None]
  - EAR PAIN [None]
  - AURICULAR SWELLING [None]
  - SKIN IRRITATION [None]
